FAERS Safety Report 5082569-X (Version None)
Quarter: 2006Q3

REPORT INFORMATION
  Report Type: 
  Country: None (occurrence: None)
  Receive Date: 20060814
  Receipt Date: 20060803
  Transmission Date: 20061208
  Serious: Yes (Hospitalization)
  Sender: FDA-Public Use
  Company Number: 14526

PATIENT
  Age: 53 Year
  Sex: Male

DRUGS (6)
  1. AMIODARONE HCL [Suspect]
     Indication: ATRIAL FIBRILLATION
  2. DILTIAZEM HCL [Concomitant]
  3. DIGOXIN [Concomitant]
  4. IRBESARTAN [Concomitant]
  5. FUROSEMIDE [Concomitant]
  6. CARVEDILOL [Concomitant]

REACTIONS (18)
  - ATRIAL FIBRILLATION [None]
  - BLOOD GLUCOSE INCREASED [None]
  - BLOOD THYROID STIMULATING HORMONE DECREASED [None]
  - BUNDLE BRANCH BLOCK RIGHT [None]
  - CARDIOMEGALY [None]
  - DIZZINESS [None]
  - DYSPNOEA [None]
  - ELECTROCARDIOGRAM ST SEGMENT DEPRESSION [None]
  - FATIGUE [None]
  - GAIT DISTURBANCE [None]
  - HAEMATOCRIT DECREASED [None]
  - HYPERHIDROSIS [None]
  - HYPERTHYROIDISM [None]
  - INTENTION TREMOR [None]
  - MITRAL VALVE INCOMPETENCE [None]
  - OEDEMA PERIPHERAL [None]
  - THYROXINE DECREASED [None]
  - VENTRICULAR HYPOKINESIA [None]
